FAERS Safety Report 15157940 (Version 1)
Quarter: 2018Q3

REPORT INFORMATION
  Report Type: Spontaneous
  Country: US (occurrence: US)
  Receive Date: 20180718
  Receipt Date: 20180718
  Transmission Date: 20181010
  Serious: No
  Sender: FDA-Public Use
  Company Number: US-BEH-2018092786

PATIENT
  Sex: Female
  Weight: 77.98 kg

DRUGS (23)
  1. LIDOCAINE. [Concomitant]
     Active Substance: LIDOCAINE
  2. LISINOPRIL HCTZ [Concomitant]
     Active Substance: HYDROCHLOROTHIAZIDE\LISINOPRIL
  3. PREVACID [Concomitant]
     Active Substance: LANSOPRAZOLE
  4. PROVIGIL [Concomitant]
     Active Substance: MODAFINIL
  5. CYPROHEPTADINE. [Concomitant]
     Active Substance: CYPROHEPTADINE
  6. VALIUM [Concomitant]
     Active Substance: DIAZEPAM
  7. DIPHENHYDRAMINE. [Concomitant]
     Active Substance: DIPHENHYDRAMINE
  8. SODIUM CHLORIDE. [Concomitant]
     Active Substance: SODIUM CHLORIDE
  9. TIZANIDINE. [Concomitant]
     Active Substance: TIZANIDINE
  10. PRILOSEC [Concomitant]
     Active Substance: OMEPRAZOLE MAGNESIUM
  11. METROGEL [Concomitant]
     Active Substance: METRONIDAZOLE
  12. ACYCLOVIR                          /00587301/ [Concomitant]
     Active Substance: ACYCLOVIR
  13. PREDNISONE. [Concomitant]
     Active Substance: PREDNISONE
  14. PRIVIGEN [Suspect]
     Active Substance: HUMAN IMMUNOGLOBULIN G
     Dosage: 150 G, TOT
     Route: 042
  15. METHOTREXATE. [Concomitant]
     Active Substance: METHOTREXATE
  16. EPINEPHRINE. [Concomitant]
     Active Substance: EPINEPHRINE
  17. PRIVIGEN [Suspect]
     Active Substance: HUMAN IMMUNOGLOBULIN G
     Indication: CHRONIC INFLAMMATORY DEMYELINATING POLYRADICULONEUROPATHY
     Dosage: 150 G, PRN
     Route: 042
     Dates: start: 20150302
  18. NORMAL SALINE [Concomitant]
     Active Substance: SODIUM CHLORIDE
  19. ASPIRIN. [Concomitant]
     Active Substance: ASPIRIN
  20. METHYLPREDNISOLONE. [Concomitant]
     Active Substance: METHYLPREDNISOLONE
  21. ACETAMINOPHEN. [Concomitant]
     Active Substance: ACETAMINOPHEN
  22. HEPARIN [Concomitant]
     Active Substance: HEPARIN SODIUM
  23. MONTELUKAST [Concomitant]
     Active Substance: MONTELUKAST SODIUM

REACTIONS (1)
  - Paraesthesia [Unknown]
